FAERS Safety Report 4594593-1 (Version None)
Quarter: 2005Q1

REPORT INFORMATION
  Report Type: 
  Country: None (occurrence: None)
  Receive Date: 20050301
  Receipt Date: 20040804
  Transmission Date: 20050727
  Serious: No
  Sender: FDA-Public Use
  Company Number: US-BRISTOL-MYERS SQUIBB COMPANY-12663373

PATIENT
  Age: 45 Year
  Sex: Female

DRUGS (11)
  1. ERBITUX [Suspect]
     Indication: SMALL INTESTINE CARCINOMA METASTATIC
     Dosage: 1ST DOSE, INFUSION RATE SLOWED TO 50 CC/HR, THEN INCREASED TO 100 CC/HR
     Route: 042
     Dates: start: 20040804, end: 20040804
  2. TYLENOL (CAPLET) [Concomitant]
     Indication: PREMEDICATION
     Dates: start: 20040804, end: 20040804
  3. HEXADROL [Concomitant]
     Indication: PREMEDICATION
     Dates: start: 20040804, end: 20040804
  4. BENADRYL [Concomitant]
     Indication: PREMEDICATION
     Dates: start: 20040804, end: 20040804
  5. TAGAMET [Concomitant]
     Indication: PREMEDICATION
     Dates: start: 20040804, end: 20040804
  6. DEMEROL [Concomitant]
     Indication: PREMEDICATION
     Dates: start: 20040804, end: 20040804
  7. ATROPINE [Concomitant]
     Indication: PREMEDICATION
     Dates: start: 20040804, end: 20040804
  8. ALOXI [Concomitant]
     Indication: PREMEDICATION
     Dates: start: 20040804, end: 20040804
  9. FLUOROURACIL [Concomitant]
  10. LEUCOVORIN [Concomitant]
  11. CPT-11 [Concomitant]

REACTIONS (1)
  - INFUSION RELATED REACTION [None]
